FAERS Safety Report 5810771-5 (Version None)
Quarter: 2008Q3

REPORT INFORMATION
  Report Type: 
  Country: None (occurrence: None)
  Receive Date: 20080710
  Receipt Date: 20080619
  Transmission Date: 20090109
  Serious: Yes (Death)
  Sender: FDA-Public Use
  Company Number: 08-025

PATIENT
  Age: 49 Year
  Sex: Female

DRUGS (13)
  1. LORCET-HD [Suspect]
     Indication: PAIN
     Dosage: 1 TAB./4-6 HRS, BY MOUTH
     Dates: end: 20080428
  2. OXYMORPHONE EXTENDED RELEASE [Suspect]
     Indication: PAIN IN EXTREMITY
     Dosage: 10MG, TWICE DAILY,
     Dates: start: 20080201, end: 20080428
  3. LANTUS [Suspect]
     Indication: TYPE 1 DIABETES MELLITUS
     Dosage: 40 UNITS DAILY, INJECTION
     Dates: end: 20080428
  4. INSULIN ASPART [Suspect]
     Indication: TYPE 1 DIABETES MELLITUS
     Dosage: 3-18 UNITS DAILY, INJECTION
     Dates: end: 20080428
  5. ZONISAMIDE [Suspect]
     Dosage: ORALLY
     Route: 048
     Dates: end: 20080428
  6. OXCARBAZEPINE [Suspect]
     Indication: NEURALGIA
     Dosage: 200MG TWICE DAILY, ORALLY
     Route: 048
     Dates: end: 20080428
  7. DULOXETINE [Suspect]
     Indication: DEPRESSION
     Dosage: 90MG, DAILY, ORALLY
     Route: 048
     Dates: end: 20080428
  8. ALPRAZOLAM [Suspect]
     Indication: ANXIETY
     Dosage: 0.5MG TWICE DAILY, ORALLY
     Route: 048
     Dates: end: 20080428
  9. CLOPIDOGREL BISULFATE [Concomitant]
  10. LANSOPRAZOLE [Concomitant]
  11. METOCLOPRAMIDE [Concomitant]
  12. HYZAAR [Concomitant]
  13. LYRICA [Concomitant]

REACTIONS (7)
  - DIABETES MELLITUS INADEQUATE CONTROL [None]
  - DRUG INTERACTION [None]
  - MALAISE [None]
  - PAIN IN EXTREMITY [None]
  - RESTLESSNESS [None]
  - UNRESPONSIVE TO STIMULI [None]
  - VOMITING [None]
